FAERS Safety Report 7386895-0 (Version None)
Quarter: 2011Q1

REPORT INFORMATION
  Report Type: 
  Country: None (occurrence: None)
  Receive Date: 20110331
  Receipt Date: 20110329
  Transmission Date: 20110831
  Serious: No
  Sender: FDA-Public Use
  Company Number: US-PFIZER INC-2011070142

PATIENT
  Age: 14 Year
  Sex: Male

DRUGS (2)
  1. GEODON [Suspect]
     Indication: ASPERGER'S DISORDER
  2. GEODON [Suspect]
     Indication: AUTISM
     Dosage: 40 MG, DAILY
     Route: 048

REACTIONS (1)
  - DYSKINESIA [None]
